FAERS Safety Report 8390569-7 (Version None)
Quarter: 2012Q2

REPORT INFORMATION
  Report Type: 
  Country: None (occurrence: None)
  Receive Date: 20120529
  Receipt Date: 20120517
  Transmission Date: 20120825
  Serious: Yes (Hospitalization)
  Sender: FDA-Public Use
  Company Number: GB-ELI_LILLY_AND_COMPANY-GB201202004210

PATIENT
  Age: 74 Year
  Sex: Male

DRUGS (9)
  1. CISPLATIN [Suspect]
     Indication: TRANSITIONAL CELL CARCINOMA
     Dosage: 70 MG, DAY 1 EVERY THREE WEEKS
     Route: 042
     Dates: start: 20111213
  2. SIMVASTATIN [Concomitant]
     Dosage: UNK
     Dates: start: 20100101
  3. GEMCITABINE HYDROCHLORIDE [Suspect]
     Indication: TRANSITIONAL CELL CARCINOMA
     Dosage: 1000 MG, DAY 1 AND 8
     Route: 042
     Dates: start: 20111213
  4. BECLOMETHASONE DIPROPIONATE [Concomitant]
     Dosage: UNK
     Dates: start: 20060101
  5. AMLODIPINE BESYLATE [Concomitant]
     Dosage: UNK
     Dates: start: 20070101
  6. LISINOPRIL [Concomitant]
     Dosage: UNK
     Dates: start: 20110201
  7. ACETAMINOPHEN AND CODEINE PHOSPHATE [Concomitant]
     Dosage: UNK
     Dates: start: 20110301
  8. SUNITINIB MALATE [Suspect]
     Indication: TRANSITIONAL CELL CARCINOMA
     Dosage: 25 MG, CYCLICALLY (14 DAY CYCLE)
     Route: 048
     Dates: start: 20111214
  9. ALBUTEROL [Concomitant]
     Dosage: UNK
     Dates: start: 20060101

REACTIONS (2)
  - NEUTROPENIA [None]
  - PYREXIA [None]
